FAERS Safety Report 15504252 (Version 4)
Quarter: 2018Q4

REPORT INFORMATION
  Report Type: Report from Study
  Country: None (occurrence: GB)
  Receive Date: 20181016
  Receipt Date: 20181228
  Transmission Date: 20190205
  Serious: Yes (Hospitalization)
  Sender: FDA-Public Use
  Company Number: GB-ABBVIE-18S-167-2470042-00

PATIENT
  Age: 81 Year
  Sex: Female

DRUGS (6)
  1. DUODOPA [Suspect]
     Active Substance: CARBIDOPA\LEVODOPA
     Dosage: CONTINUOUS RATE INCREASED FROM 2.7ML TO 2.8ML. EXTRA DOSE INCREASED FROM 1ML TO 1.5ML
     Route: 050
  2. DUODOPA [Suspect]
     Active Substance: CARBIDOPA\LEVODOPA
     Dosage: CONTINUOUS RATE 2.3ML
     Route: 050
  3. DUODOPA [Suspect]
     Active Substance: CARBIDOPA\LEVODOPA
     Indication: PARKINSON^S DISEASE
     Dosage: 100ML ONCE DAILY
     Route: 050
  4. OPICAPONE [Suspect]
     Active Substance: OPICAPONE
     Indication: PRODUCT USED FOR UNKNOWN INDICATION
     Route: 065
     Dates: end: 20180818
  5. DUODOPA [Suspect]
     Active Substance: CARBIDOPA\LEVODOPA
     Dosage: CONTINUOUS RATE 2.7ML
     Route: 050
  6. DUODOPA [Suspect]
     Active Substance: CARBIDOPA\LEVODOPA
     Dosage: CONTINUOUS RATE DECREASED TO 2.4MG/HOUR
     Route: 050

REACTIONS (19)
  - Fall [Unknown]
  - Hallucination, visual [Not Recovered/Not Resolved]
  - Device dislocation [Recovered/Resolved]
  - On and off phenomenon [Unknown]
  - Feeling abnormal [Unknown]
  - Hospitalisation [Recovered/Resolved]
  - Device issue [Unknown]
  - Dystonia [Unknown]
  - Urinary tract infection [Unknown]
  - Head injury [Unknown]
  - Depressed mood [Unknown]
  - Device dislocation [Recovered/Resolved]
  - Muscle rigidity [Unknown]
  - Diarrhoea [Recovered/Resolved]
  - Device breakage [Recovered/Resolved]
  - Bradykinesia [Unknown]
  - Device dislocation [Not Recovered/Not Resolved]
  - Abdominal discomfort [Recovered/Resolved]
  - Weight decreased [Recovered/Resolved]

NARRATIVE: CASE EVENT DATE: 2018
